FAERS Safety Report 20779473 (Version 1)
Quarter: 2022Q2

REPORT INFORMATION
  Report Type: Spontaneous
  Country: US (occurrence: US)
  Receive Date: 20220503
  Receipt Date: 20220503
  Transmission Date: 20220721
  Serious: No
  Sender: FDA-Public Use
  Company Number: US-PFIZER INC-202200073110

PATIENT
  Age: 48 Year
  Sex: Female

DRUGS (4)
  1. XELJANZ XR [Suspect]
     Active Substance: TOFACITINIB CITRATE
     Indication: Rheumatoid arthritis
     Dosage: 11 MG, DAILY
     Route: 048
     Dates: start: 202111
  2. XELJANZ XR [Suspect]
     Active Substance: TOFACITINIB CITRATE
     Indication: Psoriatic arthropathy
     Dosage: 11 MG, ALTERNATE DAY (1 TABLET EVERY OTHER DAY FOR A WEEK)
  3. XELJANZ XR [Suspect]
     Active Substance: TOFACITINIB CITRATE
     Dosage: 22 MG, DAILY (11MG 2 TABS DAILY FOR 3-4 DAYS )
  4. XELJANZ XR [Suspect]
     Active Substance: TOFACITINIB CITRATE
     Dosage: 11 MG, 1X/DAY (11MG 1 TAB ONCE DAILY)

REACTIONS (8)
  - Heart rate decreased [Recovering/Resolving]
  - Autonomic nervous system imbalance [Unknown]
  - White blood cell count decreased [Unknown]
  - Weight increased [Unknown]
  - Fall [Unknown]
  - Balance disorder [Unknown]
  - Skin abrasion [Unknown]
  - Off label use [Unknown]

NARRATIVE: CASE EVENT DATE: 20220101
